FAERS Safety Report 6669429-5 (Version None)
Quarter: 2010Q2

REPORT INFORMATION
  Report Type: 
  Country: None (occurrence: None)
  Receive Date: 20100402
  Receipt Date: 20100325
  Transmission Date: 20101027
  Serious: Yes (Other)
  Sender: FDA-Public Use
  Company Number: 1000012738

PATIENT
  Age: 36 Year
  Sex: Female

DRUGS (2)
  1. BYSTOLIC [Suspect]
     Indication: HYPERTENSION
     Dosage: ORAL
     Route: 048
  2. ATENOLOL [Concomitant]

REACTIONS (9)
  - CHEST DISCOMFORT [None]
  - DIZZINESS [None]
  - HEART VALVE INCOMPETENCE [None]
  - HYPERTENSION [None]
  - JAW DISORDER [None]
  - LEFT VENTRICULAR HYPERTROPHY [None]
  - LIMB DISCOMFORT [None]
  - MUSCULOSKELETAL DISCOMFORT [None]
  - PALPITATIONS [None]
